FAERS Safety Report 15575033 (Version 1)
Quarter: 2018Q4

REPORT INFORMATION
  Report Type: Spontaneous
  Country: US (occurrence: US)
  Receive Date: 20181101
  Receipt Date: 20181101
  Transmission Date: 20190205
  Serious: No
  Sender: FDA-Public Use
  Company Number: None

PATIENT

DRUGS (2)
  1. PROTONIX [Suspect]
     Active Substance: PANTOPRAZOLE SODIUM
  2. ACIPHEX [Suspect]
     Active Substance: RABEPRAZOLE SODIUM

REACTIONS (2)
  - Malaise [None]
  - Vomiting [None]
